FAERS Safety Report 8649965 (Version 4)
Quarter: 2012Q4

REPORT INFORMATION
  Report Type: 
  Country: US (occurrence: US)
  Receive Date: 20120705
  Receipt Date: 20121217
  Transmission Date: 20130627
  Serious: Yes (Hospitalization, Other)
  Sender: FDA-Public Use
  Company Number: US-PFIZER INC-2012158555

PATIENT
  Age: 43 Year
  Sex: Female
  Weight: 63.49 kg

DRUGS (14)
  1. CHANTIX [Suspect]
     Indication: SMOKING CESSATION THERAPY
     Dosage: 1 mg, 2x/day
     Dates: start: 201203, end: 201205
  2. PROZAC [Concomitant]
     Indication: DEPRESSION
     Dosage: 20 mg, 4x/day
  3. ZOLOFT [Concomitant]
     Indication: AFFECTIVE DISORDER
     Dosage: 100mg daily
  4. LAMICTAL [Concomitant]
     Dosage: 100 mg daily
  5. KLONOPIN [Concomitant]
     Indication: ANXIETY
     Dosage: 2 mg, 2x/day
  6. KLONOPIN [Concomitant]
     Indication: PANIC ATTACKS
  7. ALBUTEROL [Concomitant]
     Dosage: UNK
  8. ZYRTEC [Concomitant]
     Dosage: UNK
  9. LEVODOPA-CARBIDOPA [Concomitant]
     Dosage: UNK
  10. QVAR [Concomitant]
     Dosage: UNK
  11. ZETIA [Concomitant]
     Dosage: UNK
  12. PROTONIX [Concomitant]
     Dosage: UNK
  13. FLOVENT [Concomitant]
     Dosage: UNK
  14. NASONEX [Concomitant]
     Dosage: UNK

REACTIONS (5)
  - Urinary tract infection [Unknown]
  - Respiratory tract infection [Unknown]
  - Tobacco user [Unknown]
  - Pain [Unknown]
  - Lung disorder [Unknown]
